FAERS Safety Report 21037006 (Version 4)
Quarter: 2022Q3

REPORT INFORMATION
  Report Type: Spontaneous
  Country: US (occurrence: None)
  Receive Date: 20220702
  Receipt Date: 20220809
  Transmission Date: 20221027
  Serious: Yes (Hospitalization)
  Sender: FDA-Public Use
  Company Number: 2022A237818

PATIENT
  Age: 72 Year
  Sex: Male
  Weight: 97.5 kg

DRUGS (2)
  1. BUDESONIDE\FORMOTEROL [Suspect]
     Active Substance: BUDESONIDE\FORMOTEROL
     Indication: Chronic obstructive pulmonary disease
     Dosage: 160MCG/4.5MCG AS 2 PUFFS TWICE A DAY
     Route: 055
  2. SYMBICORT [Suspect]
     Active Substance: BUDESONIDE\FORMOTEROL FUMARATE DIHYDRATE
     Indication: Chronic obstructive pulmonary disease
     Dosage: 60MCG/4.5MCG AS 2 PUFFS TWICE A DAY
     Route: 055

REACTIONS (11)
  - Chronic obstructive pulmonary disease [Recovered/Resolved]
  - Pneumonia [Recovered/Resolved]
  - Cardiac failure congestive [Recovering/Resolving]
  - Bacteraemia [Recovered/Resolved]
  - Heart valve incompetence [Recovered/Resolved]
  - Intestinal mass [Recovered/Resolved]
  - Bladder perforation [Recovered/Resolved]
  - Cardiac disorder [Unknown]
  - Device use issue [Unknown]
  - Device delivery system issue [Unknown]
  - Insurance issue [Unknown]

NARRATIVE: CASE EVENT DATE: 20140101
